FAERS Safety Report 25347435 (Version 1)
Quarter: 2025Q2

REPORT INFORMATION
  Report Type: Spontaneous
  Country: FR (occurrence: FR)
  Receive Date: 20250522
  Receipt Date: 20250522
  Transmission Date: 20250717
  Serious: Yes (Hospitalization)
  Sender: B BRAUN
  Company Number: FR-B.Braun Medical Inc.-2177018

PATIENT
  Age: 34 Year
  Sex: Female
  Weight: 67 kg

DRUGS (9)
  1. ACETAMINOPHEN [Suspect]
     Active Substance: ACETAMINOPHEN
     Indication: Analgesic therapy
     Dates: start: 20250120, end: 20250120
  2. PROPOFOL LIPURO [Suspect]
     Active Substance: PROPOFOL
  3. POVIDONE-IODINE [Suspect]
     Active Substance: POVIDONE-IODINE
  4. EPHEDRINE [Suspect]
     Active Substance: EPHEDRINE
  5. ATROPINE SULFATE [Suspect]
     Active Substance: ATROPINE SULFATE
  6. SUFENTANIL CITRATE [Suspect]
     Active Substance: SUFENTANIL CITRATE
  7. TRAMADOL HYDROCHLORIDE [Suspect]
     Active Substance: TRAMADOL HYDROCHLORIDE
  8. CISATRACURIUM BESYLATE [Suspect]
     Active Substance: CISATRACURIUM BESYLATE
  9. VANCOMYCIN HYDROCHLORIDE [Suspect]
     Active Substance: VANCOMYCIN HYDROCHLORIDE

REACTIONS (2)
  - Circulatory collapse [Recovered/Resolved]
  - Erythema [Recovered/Resolved]
